FAERS Safety Report 5430137-X (Version None)
Quarter: 2007Q3

REPORT INFORMATION
  Report Type: 
  Country: None (occurrence: None)
  Receive Date: 20070731
  Receipt Date: 20070426
  Transmission Date: 20080115
  Serious: No
  Sender: FDA-Public Use
  Company Number: US200704006334

PATIENT
  Age: 61 Year
  Sex: Male

DRUGS (7)
  1. BYETTA [Suspect]
     Indication: TYPE 2 DIABETES MELLITUS
     Dosage: 5 UG, 2/D, SUBCUTANEOUS
     Route: 058
     Dates: start: 20070423
  2. EXENATIDE (EXENATIDE PEN) [Concomitant]
  3. STARLIX [Concomitant]
  4. LANTUS [Concomitant]
  5. METFORMIN HCL [Concomitant]
  6. INSULIN (INSULIN) [Concomitant]
  7. REGLAN [Concomitant]

REACTIONS (2)
  - MALAISE [None]
  - NAUSEA [None]
